FAERS Safety Report 10480458 (Version 1)
Quarter: 2014Q3

REPORT INFORMATION
  Report Type: Spontaneous
  Country: GB (occurrence: GB)
  Receive Date: 20140929
  Receipt Date: 20140929
  Transmission Date: 20150326
  Serious: Yes (Other)
  Sender: FDA-Public Use
  Company Number: GB-JNJFOC-20140916274

PATIENT
  Age: 30 Year
  Sex: Female
  Weight: 74.93 kg

DRUGS (3)
  1. PALIPERIDONE PALMITATE [Suspect]
     Active Substance: PALIPERIDONE PALMITATE
     Indication: FACTITIOUS DISORDER
     Route: 030
     Dates: start: 201308
  2. PALIPERIDONE PALMITATE [Suspect]
     Active Substance: PALIPERIDONE PALMITATE
     Indication: PSYCHOLOGICAL ABUSE
     Route: 030
     Dates: start: 201308
  3. CIRCADIN [Suspect]
     Active Substance: MELATONIN
     Indication: INSOMNIA
     Route: 065
     Dates: start: 20140819, end: 20140902

REACTIONS (6)
  - Abnormal dreams [Not Recovered/Not Resolved]
  - Superovulation [Not Recovered/Not Resolved]
  - Sedation [Not Recovered/Not Resolved]
  - Inappropriate schedule of drug administration [Unknown]
  - Amenorrhoea [Not Recovered/Not Resolved]
  - Off label use [Unknown]
